FAERS Safety Report 7981593-4 (Version None)
Quarter: 2011Q4

REPORT INFORMATION
  Report Type: 
  Country: None (occurrence: None)
  Receive Date: 20111215
  Receipt Date: 20111130
  Transmission Date: 20120403
  Serious: Yes (Other)
  Sender: FDA-Public Use
  Company Number: JP-PFIZER INC-2011303382

PATIENT
  Sex: Male
  Weight: 3.1 kg

DRUGS (2)
  1. LAMIVUDINE + ZIDOVUDINE [Suspect]
     Dosage: EVERY DAY
     Route: 064
  2. NELFINAVIR MESYLATE [Suspect]
     Dosage: EVERY DAY
     Route: 064

REACTIONS (3)
  - HYPOGLYCAEMIA [None]
  - MATERNAL EXPOSURE TIMING UNSPECIFIED [None]
  - TRANSIENT TACHYPNOEA OF THE NEWBORN [None]
